FAERS Safety Report 15557621 (Version 3)
Quarter: 2020Q2

REPORT INFORMATION
  Report Type: Report from Study
  Country: US (occurrence: US)
  Receive Date: 20181027
  Receipt Date: 20200606
  Transmission Date: 20200713
  Serious: Yes (Other)
  Sender: FDA-Public Use
  Company Number: PHEH2018US045278

PATIENT
  Age: 21 Year
  Sex: Male

DRUGS (1)
  1. GILENYA [Suspect]
     Active Substance: FINGOLIMOD HYDROCHLORIDE
     Indication: RELAPSING-REMITTING MULTIPLE SCLEROSIS
     Dosage: 0.5 MG, QD
     Route: 048
     Dates: start: 20181017

REACTIONS (4)
  - Vision blurred [Not Recovered/Not Resolved]
  - Headache [Unknown]
  - Paternal exposure during pregnancy [Unknown]
  - Eye pain [Unknown]

NARRATIVE: CASE EVENT DATE: 20181017
